FAERS Safety Report 12040917 (Version 1)
Quarter: 2016Q1

REPORT INFORMATION
  Report Type: Report from Study
  Country: US (occurrence: US)
  Receive Date: 20160208
  Receipt Date: 20160208
  Transmission Date: 20160526
  Serious: No
  Sender: FDA-Public Use
  Company Number: US-ABBVIE-15P-163-1336700-00

PATIENT
  Age: 15 Year
  Sex: Male

DRUGS (2)
  1. HUMIRA [Suspect]
     Active Substance: ADALIMUMAB
     Indication: CROHN^S DISEASE
     Route: 058
     Dates: start: 20141119
  2. METHOTREXATE [Concomitant]
     Active Substance: METHOTREXATE
     Indication: DIARRHOEA
     Dates: start: 20150111

REACTIONS (4)
  - Fatigue [Recovered/Resolved]
  - Haematochezia [Recovering/Resolving]
  - Somnolence [Recovered/Resolved]
  - Diarrhoea [Recovering/Resolving]

NARRATIVE: CASE EVENT DATE: 201410
